FAERS Safety Report 6775180-3 (Version None)
Quarter: 2010Q2

REPORT INFORMATION
  Report Type: 
  Country: None (occurrence: None)
  Receive Date: 20100617
  Receipt Date: 20100609
  Transmission Date: 20101027
  Serious: Yes (Other)
  Sender: FDA-Public Use
  Company Number: BR-PFIZER INC-2010071024

PATIENT
  Sex: Female

DRUGS (2)
  1. XALATAN [Suspect]
     Indication: INTRAOCULAR PRESSURE INCREASED
     Dosage: 1 GTT, EACH EYE, 1X/DAY AT NIGHT
     Route: 047
     Dates: start: 20100501
  2. PURAN T4 [Concomitant]
     Indication: THYROID DISORDER
     Dosage: 1/2 TABLET IN THE MORNING
     Dates: start: 20050101

REACTIONS (2)
  - BLOOD POTASSIUM DECREASED [None]
  - BLOOD UREA INCREASED [None]
